FAERS Safety Report 8488063-8 (Version None)
Quarter: 2012Q3

REPORT INFORMATION
  Report Type: 
  Country: None (occurrence: None)
  Receive Date: 20120705
  Receipt Date: 20120625
  Transmission Date: 20120928
  Serious: Yes (Life-Threatening, Hospitalization, Other)
  Sender: FDA-Public Use
  Company Number: JP-BRISTOL-MYERS SQUIBB COMPANY-16712127

PATIENT

DRUGS (1)
  1. VIDEX EC [Suspect]
     Indication: HIV TEST
     Route: 048

REACTIONS (2)
  - PORTAL HYPERTENSION [None]
  - PANCYTOPENIA [None]
